FAERS Safety Report 6621799-X (Version None)
Quarter: 2010Q1

REPORT INFORMATION
  Report Type: 
  Country: None (occurrence: None)
  Receive Date: 20100309
  Receipt Date: 20100127
  Transmission Date: 20100710
  Serious: Yes (Death, Hospitalization, Other)
  Sender: FDA-Public Use
  Company Number: PHHY2009ES29523

PATIENT
  Age: 63 Year
  Sex: Male

DRUGS (3)
  1. AFINITOR [Suspect]
     Indication: NEUROENDOCRINE CARCINOMA
     Dosage: 5 MG DAILY
     Route: 048
     Dates: start: 20090701
  2. DIAZOXIDE [Suspect]
     Indication: HYPOGLYCAEMIA
     Dosage: 200 MG, Q8H
     Route: 048
  3. CORTICOSTEROID NOS [Concomitant]
     Dosage: UNK

REACTIONS (10)
  - ABDOMINAL PAIN [None]
  - ACUTE ABDOMEN [None]
  - ANURIA [None]
  - GASTROINTESTINAL DISORDER [None]
  - HAEMODYNAMIC INSTABILITY [None]
  - INSULINOMA [None]
  - LOCALISED OEDEMA [None]
  - MALIGNANT NEOPLASM PROGRESSION [None]
  - MUSCLE STRAIN [None]
  - OEDEMA PERIPHERAL [None]
